FAERS Safety Report 8474875-3 (Version None)
Quarter: 2012Q2

REPORT INFORMATION
  Report Type: 
  Country: None (occurrence: None)
  Receive Date: 20120628
  Receipt Date: 20120621
  Transmission Date: 20120825
  Serious: Yes (Other)
  Sender: FDA-Public Use
  Company Number: HU-PFIZER INC-2012151146

PATIENT
  Age: 59 Year
  Sex: Female
  Weight: 98 kg

DRUGS (8)
  1. INSULIN [Concomitant]
     Dosage: UNK
  2. FUROSEMIDE [Concomitant]
     Dosage: UNK
  3. TRAMADOL [Concomitant]
     Indication: PAIN
     Dosage: UNK
     Dates: start: 20120620
  4. ATORVA TEVA [Concomitant]
     Dosage: UNK
     Dates: start: 20120620
  5. KALIUM [Concomitant]
     Dosage: UNK
  6. LYRICA [Suspect]
     Indication: NEURALGIA
     Dosage: 75 MG, 2X/DAY
     Dates: start: 20120101
  7. ASPIRIN [Concomitant]
     Dosage: UNK
     Dates: end: 20120620
  8. NOOTROPIL [Concomitant]
     Dosage: UNK
     Dates: start: 20120620

REACTIONS (11)
  - DYSGEUSIA [None]
  - DIZZINESS [None]
  - AGEUSIA [None]
  - PARAESTHESIA [None]
  - LOSS OF CONSCIOUSNESS [None]
  - HAEMOPTYSIS [None]
  - FATIGUE [None]
  - MUSCLE SPASMS [None]
  - HYPOAESTHESIA [None]
  - MOVEMENT DISORDER [None]
  - ABDOMINAL PAIN UPPER [None]
